FAERS Safety Report 8427542-6 (Version None)
Quarter: 2012Q2

REPORT INFORMATION
  Report Type: 
  Country: None (occurrence: None)
  Receive Date: 20120611
  Receipt Date: 20120531
  Transmission Date: 20120825
  Serious: Yes (Other)
  Sender: FDA-Public Use
  Company Number: EE-ASTRAZENECA-2012SE36495

PATIENT
  Age: 50 Year
  Sex: Female

DRUGS (2)
  1. VIMOVO [Suspect]
     Indication: SPONDYLOARTHROPATHY
     Dosage: 500+20 MG TABLET TWO TIMES A DAY
     Route: 048
     Dates: start: 20120514, end: 20120516
  2. VIMOVO [Suspect]
     Indication: OSTEOARTHRITIS
     Dosage: 500+20 MG TABLET TWO TIMES A DAY
     Route: 048
     Dates: start: 20120514, end: 20120516

REACTIONS (2)
  - DYSPNOEA [None]
  - ECCHYMOSIS [None]
